FAERS Safety Report 4289493-0 (Version None)
Quarter: 2004Q1

REPORT INFORMATION
  Report Type: 
  Country: None (occurrence: None)
  Receive Date: 20040123
  Receipt Date: 20021227
  Transmission Date: 20041129
  Serious: Yes (Other)
  Sender: FDA-Public Use
  Company Number: M2002.2757

PATIENT
  Age: 65 Year
  Sex: Female
  Weight: 68.0396 kg

DRUGS (7)
  1. PERPHENAZINE [Suspect]
     Indication: MENTAL DISORDER
     Dosage: 3X NIGHTLY
     Dates: end: 20021201
  2. ZESTRIL [Concomitant]
  3. ATENOLOL [Concomitant]
  4. RESTORIL [Concomitant]
  5. ATIVAN [Concomitant]
  6. COLASE [Concomitant]
  7. ABILIFY [Concomitant]

REACTIONS (3)
  - AMNESIA [None]
  - NIGHTMARE [None]
  - PARANOIA [None]
